FAERS Safety Report 8622050-1 (Version None)
Quarter: 2012Q3

REPORT INFORMATION
  Report Type: 
  Country: None (occurrence: None)
  Receive Date: 20120823
  Receipt Date: 20120823
  Transmission Date: 20120928
  Serious: Yes (Hospitalization)
  Sender: FDA-Public Use
  Company Number: None

PATIENT
  Sex: Male
  Weight: 60.782 kg

DRUGS (1)
  1. PEPCID [Suspect]
     Indication: GASTROOESOPHAGEAL REFLUX DISEASE
     Dosage: 20MG TWICE A DAY PO
     Route: 048
     Dates: start: 19910801, end: 20120701

REACTIONS (3)
  - PRODUCT FORMULATION ISSUE [None]
  - ACIDOSIS [None]
  - ABDOMINAL PAIN [None]
